FAERS Safety Report 5956328-7 (Version None)
Quarter: 2008Q4

REPORT INFORMATION
  Report Type: 
  Country: None (occurrence: None)
  Receive Date: 20081118
  Receipt Date: 20081111
  Transmission Date: 20090506
  Serious: Yes (Other)
  Sender: FDA-Public Use
  Company Number: PHHY2008MT23263

PATIENT
  Age: 77 Year
  Sex: Male

DRUGS (4)
  1. EXELON [Suspect]
     Indication: DEMENTIA
     Dosage: 4.6 MG/24 HR
     Route: 062
     Dates: start: 20080918, end: 20080927
  2. SINEMET [Concomitant]
     Dosage: 10/100, 8 TABS DAILY
     Route: 048
  3. REQUIP [Concomitant]
     Dosage: 1.25 MG+1.25MG+0.25MG
  4. ASPIRIN [Concomitant]
     Dosage: 75 MG
     Route: 048

REACTIONS (9)
  - BLOOD PRESSURE FLUCTUATION [None]
  - CONFUSIONAL STATE [None]
  - DEMENTIA [None]
  - DISEASE PROGRESSION [None]
  - DIZZINESS [None]
  - FALL [None]
  - HYPOTENSION [None]
  - SYNCOPE [None]
  - TACHYCARDIA [None]
